FAERS Safety Report 18061230 (Version 2)
Quarter: 2021Q1

REPORT INFORMATION
  Report Type: Report from Study
  Country: DE (occurrence: DE)
  Receive Date: 20200723
  Receipt Date: 20210326
  Transmission Date: 20210419
  Serious: Yes (Hospitalization)
  Sender: FDA-Public Use
  Company Number: DE-ROCHE-2644845

PATIENT
  Age: 48 Year
  Sex: Male
  Weight: 72 kg

DRUGS (6)
  1. ACALABRUTINIB. [Suspect]
     Active Substance: ACALABRUTINIB
     Indication: CHRONIC LYMPHOCYTIC LEUKAEMIA
     Dosage: ON 16/JUL/2020, HE RECEIVED THE MOST RECENT DOSE OF ACALABRUTINIB (200 MG).?ON 25/FEB/2021, HE RECEI
     Route: 065
     Dates: start: 20200616
  2. ALLOPURINOL. [Concomitant]
     Active Substance: ALLOPURINOL
     Route: 048
     Dates: start: 20200518
  3. VENETOCLAX. [Suspect]
     Active Substance: VENETOCLAX
     Indication: CHRONIC LYMPHOCYTIC LEUKAEMIA
     Dosage: ON 16/JUL/2020, HE RECEIVED THE MOST RECENT DOSE OF VENETOCLAX (20 MG)?ON 25/FEB/2021, HE RECEIVED T
     Route: 065
     Dates: start: 20200714
  4. OBINUTUZUMAB. [Suspect]
     Active Substance: OBINUTUZUMAB
     Indication: CHRONIC LYMPHOCYTIC LEUKAEMIA
     Dosage: ON 14/JUL/2020, HE RECEIVED THE MOST RECENT DOSE OF OBINUTUZUMAB (1000 MG).?ON 06/OCT/2020, HE RECEI
     Route: 042
     Dates: start: 20200519
  5. RAMIPRIL. [Concomitant]
     Active Substance: RAMIPRIL
     Route: 048
     Dates: start: 20200519
  6. COTRIM [Concomitant]
     Active Substance: SULFAMETHOXAZOLE\TRIMETHOPRIM
     Route: 048
     Dates: start: 20200603

REACTIONS (2)
  - Hypercreatinaemia [Recovered/Resolved]
  - Sudden hearing loss [Recovered/Resolved]

NARRATIVE: CASE EVENT DATE: 20200715
